FAERS Safety Report 6999337-1 (Version None)
Quarter: 2010Q3

REPORT INFORMATION
  Report Type: 
  Country: None (occurrence: None)
  Receive Date: 20100920
  Receipt Date: 20090721
  Transmission Date: 20110219
  Serious: Yes (Other)
  Sender: FDA-Public Use
  Company Number: US-ASTRAZENECA-2007UW19322

PATIENT
  Age: 517 Month
  Sex: Male
  Weight: 121.6 kg

DRUGS (4)
  1. SEROQUEL [Suspect]
     Indication: BIPOLAR DISORDER
     Route: 048
     Dates: start: 19980101
  2. SEROQUEL [Suspect]
     Indication: DEPRESSION
     Route: 048
     Dates: start: 19980101
  3. ZYPREXA [Concomitant]
     Dates: start: 20060101
  4. DEPAKOTE [Concomitant]
     Indication: DEPRESSION
     Dates: start: 20060101

REACTIONS (2)
  - PANCREATITIS [None]
  - PANCREATITIS ACUTE [None]
